FAERS Safety Report 9729197 (Version 3)
Quarter: 2014Q1

REPORT INFORMATION
  Report Type: Report from Study
  Country: JP (occurrence: JP)
  Receive Date: 20131204
  Receipt Date: 20140103
  Transmission Date: 20141002
  Serious: Yes (Disabling)
  Sender: FDA-Public Use
  Company Number: JP-ABBVIE-11P-087-0886819-00

PATIENT
  Age: 73 Year
  Sex: Female

DRUGS (27)
  1. HUMIRA 40 MG/ 0.8 ML PRE-FILLED SYRINGE [Suspect]
     Indication: RHEUMATOID ARTHRITIS
     Route: 058
     Dates: start: 20100128, end: 20100720
  2. HUMIRA 40 MG/ 0.8 ML PRE-FILLED SYRINGE [Suspect]
     Dates: start: 20100803, end: 20101108
  3. HUMIRA 40 MG/ 0.8 ML PRE-FILLED SYRINGE [Suspect]
     Dates: start: 20101124
  4. HUMIRA 40 MG/ 0.8 ML PRE-FILLED SYRINGE [Suspect]
     Dates: start: 20110806, end: 20111013
  5. METHOTREXATE [Concomitant]
     Indication: RHEUMATOID ARTHRITIS
     Dates: start: 20090801
  6. METHOTREXATE [Concomitant]
     Dates: start: 20100720, end: 20100923
  7. METHOTREXATE [Concomitant]
     Dates: start: 20100924, end: 20110505
  8. METHOTREXATE [Concomitant]
     Dates: start: 20110506
  9. METHOTREXATE [Concomitant]
     Dates: start: 20110806, end: 20111014
  10. METHOTREXATE [Concomitant]
     Dates: start: 20111015, end: 20111216
  11. METHOTREXATE [Concomitant]
     Dates: start: 20111217, end: 20130112
  12. CALCIUM FOLINATE [Concomitant]
     Indication: PROPHYLAXIS
     Route: 048
     Dates: start: 20110806, end: 20120112
  13. CALCIUM FOLINATE [Concomitant]
     Indication: ADVERSE DRUG REACTION
  14. LANSOPRAZOLE [Concomitant]
     Indication: GASTRITIS PROPHYLAXIS
     Dosage: DAILY DOSE: 15MG
     Route: 048
     Dates: start: 20110806
  15. RALOXIFENE HYDROCHLORIDE [Concomitant]
     Indication: PRODUCT USED FOR UNKNOWN INDICATION
     Dosage: DAILY DOSE: 60MG
     Route: 048
     Dates: start: 20110806
  16. PRAVASTATIN SODIUM [Concomitant]
     Indication: PRODUCT USED FOR UNKNOWN INDICATION
     Route: 048
     Dates: start: 20110806, end: 20121031
  17. DOXAZOSIN MESILATE [Concomitant]
     Indication: PRODUCT USED FOR UNKNOWN INDICATION
     Dosage: DAILY DOSE: 1MG
     Route: 048
     Dates: start: 20100720, end: 20120202
  18. METOPROLOL TARTRATE [Concomitant]
     Indication: PRODUCT USED FOR UNKNOWN INDICATION
     Dosage: DAILY DOSE: 40MG
     Route: 048
     Dates: start: 20110806
  19. TELMISARTAN [Concomitant]
     Indication: PRODUCT USED FOR UNKNOWN INDICATION
     Dosage: DAILY DOSE: 40MG
     Route: 048
     Dates: start: 20101217, end: 20120418
  20. METFORMIN HYDROCHLORIDE [Concomitant]
     Indication: PRODUCT USED FOR UNKNOWN INDICATION
     Dosage: DAILY DOSE: 500MG
     Route: 048
     Dates: start: 20110806, end: 20110915
  21. SITAGLIPTIN PHOSPHATE HYDRATE [Concomitant]
     Indication: PRODUCT USED FOR UNKNOWN INDICATION
     Dosage: DAILY DOSE: 50MG
     Route: 048
     Dates: start: 20110806, end: 20111222
  22. AMLODIPINE BESILATE [Concomitant]
     Indication: PRODUCT USED FOR UNKNOWN INDICATION
     Dosage: DAILY DOSE: 7.5MG
     Route: 048
     Dates: start: 20110806, end: 20111110
  23. AMLODIPINE BESILATE [Concomitant]
     Route: 048
     Dates: start: 20120524
  24. FUROSEMIDE [Concomitant]
     Indication: PRODUCT USED FOR UNKNOWN INDICATION
     Dosage: DAILY DOSE: 20MG
     Route: 048
     Dates: start: 20111014
  25. SPIRONOLACTONE [Concomitant]
     Indication: PRODUCT USED FOR UNKNOWN INDICATION
     Dosage: DAILY DOSE: 50MG
     Route: 048
     Dates: start: 20111014
  26. AMINO ACID PREPARATIONS FOR HEPATIC CIRRHOSIS [Concomitant]
     Indication: PRODUCT USED FOR UNKNOWN INDICATION
     Dosage: DAILY DOSE: 12.45 GRAM
     Route: 048
     Dates: start: 20111028
  27. ALLOPURINOL [Concomitant]
     Indication: PRODUCT USED FOR UNKNOWN INDICATION
     Dosage: DAILY DOSE: 100MG
     Route: 048
     Dates: start: 20111221

REACTIONS (4)
  - Ascites [Not Recovered/Not Resolved]
  - Peritoneal disorder [Unknown]
  - Uterine leiomyoma [Unknown]
  - Hepatic steatosis [Unknown]
